FAERS Safety Report 9304037 (Version 1)
Quarter: 2013Q2

REPORT INFORMATION
  Report Type: Report from Study
  Country: CL (occurrence: CL)
  Receive Date: 20130522
  Receipt Date: 20130522
  Transmission Date: 20140414
  Serious: Yes (Other)
  Sender: FDA-Public Use
  Company Number: CL-ROCHE-1068236

PATIENT
  Age: 7 Year
  Sex: Female
  Weight: 45 kg

DRUGS (2)
  1. TOCILIZUMAB [Suspect]
     Indication: JUVENILE IDIOPATHIC ARTHRITIS
     Route: 042
     Dates: start: 20100512
  2. METHOTREXATE [Suspect]
     Indication: JUVENILE IDIOPATHIC ARTHRITIS
     Route: 065
     Dates: start: 20100512

REACTIONS (4)
  - Arthritis [Not Recovered/Not Resolved]
  - Developmental hip dysplasia [Not Recovered/Not Resolved]
  - Arthralgia [Not Recovered/Not Resolved]
  - Weight loss poor [Not Recovered/Not Resolved]
